FAERS Safety Report 21734984 (Version 1)
Quarter: 2022Q4

REPORT INFORMATION
  Report Type: Spontaneous
  Country: DE (occurrence: None)
  Receive Date: 20221215
  Receipt Date: 20221215
  Transmission Date: 20230112
  Serious: Yes (Other)
  Sender: FDA-Public Use
  Company Number: DE-ROCHE-3236941

PATIENT
  Sex: Female

DRUGS (1)
  1. OCREVUS [Suspect]
     Active Substance: OCRELIZUMAB
     Indication: Multiple sclerosis
     Route: 065

REACTIONS (6)
  - Blister [Unknown]
  - Gait disturbance [Unknown]
  - Multiple sclerosis [Unknown]
  - Immunodeficiency [Unknown]
  - Malaise [Unknown]
  - Multiple sclerosis relapse [Unknown]
